FAERS Safety Report 8078039-7 (Version None)
Quarter: 2012Q1

REPORT INFORMATION
  Report Type: 
  Country: None (occurrence: None)
  Receive Date: 20120127
  Receipt Date: 20110125
  Transmission Date: 20120608
  Serious: No
  Sender: FDA-Public Use
  Company Number: US-ABBOTT-10P-163-0682713-00

PATIENT
  Sex: Female
  Weight: 50.848 kg

DRUGS (8)
  1. TOPAMAX [Concomitant]
     Indication: PRODUCT USED FOR UNKNOWN INDICATION
  2. HUMIRA [Suspect]
     Indication: PSORIATIC ARTHROPATHY
     Route: 058
     Dates: start: 20100901, end: 20101001
  3. NYSTATIN [Concomitant]
     Indication: PRODUCT USED FOR UNKNOWN INDICATION
  4. FISH OIL [Concomitant]
     Indication: MEDICAL DIET
  5. HUMIRA [Suspect]
     Indication: PUSTULAR PSORIASIS
     Dates: start: 20101201
  6. ALDACTONE [Concomitant]
     Indication: PRODUCT USED FOR UNKNOWN INDICATION
  7. VITAMIN D [Concomitant]
     Indication: VITAMIN SUPPLEMENTATION
  8. TETRACYCLINE [Concomitant]
     Indication: PRODUCT USED FOR UNKNOWN INDICATION

REACTIONS (10)
  - RASH PUSTULAR [None]
  - PRURITUS [None]
  - LYMPHADENOPATHY [None]
  - NAIL PSORIASIS [None]
  - PUSTULAR PSORIASIS [None]
  - BLISTER [None]
  - RASH GENERALISED [None]
  - GAIT DISTURBANCE [None]
  - URTICARIA [None]
  - SKIN DISORDER [None]
